FAERS Safety Report 23627372 (Version 1)
Quarter: 2024Q1

REPORT INFORMATION
  Report Type: Spontaneous
  Country: DE (occurrence: DE)
  Receive Date: 20240313
  Receipt Date: 20240313
  Transmission Date: 20240409
  Serious: Yes (Hospitalization)
  Sender: FDA-Public Use
  Company Number: DE-JNJFOC-20240285155

PATIENT
  Age: 8 Decade
  Sex: Male

DRUGS (3)
  1. DARZALEX [Suspect]
     Active Substance: DARATUMUMAB
     Indication: Plasma cell myeloma
     Dosage: LAST ADMINISTRATION BEFORE SAE: 22-JAN-202430 DAYS AFTER THERAPY: 21-FEB-2024
     Route: 058
     Dates: start: 20240115
  2. LENALIDOMIDE [Suspect]
     Active Substance: LENALIDOMIDE
     Indication: Plasma cell myeloma
     Dosage: LAST ADMINISTRATION BEFORE SAE: JAN-202430 DAYS AFTER THERAPY: 31-JAN-2024
     Route: 048
     Dates: start: 20240115
  3. PREDNISOLONE [Suspect]
     Active Substance: PREDNISOLONE
     Indication: Plasma cell myeloma
     Dosage: LAST ADMINISTRATION BEFORE SAE: 23-JAN-202430 DAYS AFTER THERAPY: 22-FEB-2024
     Route: 048
     Dates: start: 20240115

REACTIONS (2)
  - Pneumonia [Recovered/Resolved]
  - Influenza [Recovered/Resolved]

NARRATIVE: CASE EVENT DATE: 20240127
